FAERS Safety Report 9734342 (Version 1)
Quarter: 2013Q4

REPORT INFORMATION
  Report Type: Spontaneous
  Country: SE (occurrence: SE)
  Receive Date: 20131206
  Receipt Date: 20131206
  Transmission Date: 20140711
  Serious: Yes (Hospitalization)
  Sender: FDA-Public Use
  Company Number: SE-ROCHE-1314806

PATIENT
  Age: 80 Year
  Sex: Female

DRUGS (3)
  1. LUCENTIS [Suspect]
     Indication: AGE-RELATED MACULAR DEGENERATION
     Dosage: DATE OF LAST DOSE OF LUCENTIS ON 20/AUG/2013.
     Route: 050
     Dates: start: 20110414
  2. AZOPT [Concomitant]
     Dosage: 10 MG/ML
     Route: 065
     Dates: start: 20091020
  3. TIMOLOL MALEATE/TRAVOPROST [Concomitant]
     Route: 065
     Dates: start: 20130827

REACTIONS (1)
  - Transient ischaemic attack [Unknown]
